FAERS Safety Report 5090815-1 (Version None)
Quarter: 2006Q3

REPORT INFORMATION
  Report Type: 
  Country: None (occurrence: None)
  Receive Date: 20060823
  Receipt Date: 20060811
  Transmission Date: 20061208
  Serious: Yes (Hospitalization, Other)
  Sender: FDA-Public Use
  Company Number: FRWYE642210AUG06

PATIENT
  Age: 18 Month
  Sex: Male

DRUGS (2)
  1. ADVIL [Suspect]
     Indication: HYPERTHERMIA
     Dosage: ORAL
     Route: 048
     Dates: start: 20060423, end: 20060426
  2. ACETAMINOPHEN [Concomitant]

REACTIONS (7)
  - EAR CONGESTION [None]
  - GASTRIC MUCOSAL LESION [None]
  - GASTRITIS [None]
  - GASTRITIS HAEMORRHAGIC [None]
  - HAEMATEMESIS [None]
  - OBSTRUCTIVE AIRWAYS DISORDER [None]
  - PHARYNGITIS [None]
